FAERS Safety Report 5517753-1 (Version None)
Quarter: 2007Q4

REPORT INFORMATION
  Report Type: 
  Country: None (occurrence: None)
  Receive Date: 20071113
  Receipt Date: 20071107
  Transmission Date: 20080405
  Serious: Yes (Other)
  Sender: FDA-Public Use
  Company Number: 2007332619

PATIENT
  Age: 37 Year
  Sex: Male

DRUGS (1)
  1. ROGAINE 5 [Suspect]
     Indication: ALOPECIA
     Dosage: ONE TIME, TOPICAL
     Route: 061
     Dates: start: 20071010, end: 20071010

REACTIONS (8)
  - APHASIA [None]
  - EYELID OEDEMA [None]
  - GENERALISED ERYTHEMA [None]
  - LIP SWELLING [None]
  - OEDEMA PERIPHERAL [None]
  - PRURITUS GENERALISED [None]
  - SWELLING FACE [None]
  - SWOLLEN TONGUE [None]
